FAERS Safety Report 10168795 (Version 2)
Quarter: 2014Q2

REPORT INFORMATION
  Report Type: Spontaneous
  Country: RO (occurrence: RO)
  Receive Date: 20140513
  Receipt Date: 20140606
  Transmission Date: 20141212
  Serious: Yes (Hospitalization)
  Sender: FDA-Public Use
  Company Number: RO-JNJFOC-20140504587

PATIENT
  Age: 63 Year
  Sex: Female
  Weight: 54.43 kg

DRUGS (14)
  1. REMICADE [Suspect]
     Indication: PSORIASIS
     Route: 042
     Dates: end: 201306
  2. REMICADE [Suspect]
     Indication: PSORIATIC ARTHROPATHY
     Route: 042
     Dates: end: 201306
  3. REMICADE [Suspect]
     Indication: PSORIASIS
     Route: 042
     Dates: end: 201306
  4. ALGOCALMIN [Concomitant]
     Route: 065
  5. TRAMADOL [Concomitant]
     Route: 065
  6. NEOTIGASON [Concomitant]
     Route: 042
     Dates: start: 2006, end: 2008
  7. METHOTREXATE [Concomitant]
     Indication: ARTHRITIS
     Dosage: WEEKLY
     Route: 065
     Dates: end: 2013
  8. METHOTREXATE [Concomitant]
     Indication: ARTHRITIS
     Dosage: WEEKLY
     Route: 065
     Dates: start: 2006
  9. METHOTREXATE [Concomitant]
     Indication: ARTHRITIS
     Dosage: WEEKLY
     Route: 065
     Dates: start: 2008
  10. METHOTREXATE [Concomitant]
     Indication: PSORIASIS
     Dosage: WEEKLY
     Route: 065
     Dates: end: 2013
  11. METHOTREXATE [Concomitant]
     Indication: PSORIASIS
     Dosage: WEEKLY
     Route: 065
     Dates: start: 2006
  12. METHOTREXATE [Concomitant]
     Indication: PSORIASIS
     Dosage: WEEKLY
     Route: 065
     Dates: start: 2008
  13. ARAVA [Concomitant]
     Route: 065
     Dates: start: 201312
  14. DETRALEX [Concomitant]
     Indication: PERIPHERAL VENOUS DISEASE
     Dosage: 2X 500 MG DAILY
     Route: 065

REACTIONS (1)
  - Cervix carcinoma [Recovering/Resolving]
